FAERS Safety Report 7505052 (Version 3)
Quarter: 2013Q3

REPORT INFORMATION
  Report Type: Spontaneous
  Country: US (occurrence: US)
  Receive Date: 20100728
  Receipt Date: 20130911
  Transmission Date: 20140515
  Serious: Yes (Other)
  Sender: FDA-Public Use
  Company Number: US-BAYER-201028818NA

PATIENT
  Sex: Female
  Weight: 68.03 kg

DRUGS (2)
  1. YAZ [Suspect]
     Dosage: UNK
     Route: 048
     Dates: start: 20050528, end: 20050802
  2. YASMIN [Suspect]
     Route: 048
     Dates: start: 200505, end: 200508

REACTIONS (7)
  - Cerebrovascular accident [Unknown]
  - Photopsia [Unknown]
  - Migraine [Unknown]
  - Asthenia [Unknown]
  - Vision blurred [Unknown]
  - Visual impairment [Unknown]
  - Paraesthesia [Unknown]
